FAERS Safety Report 15186938 (Version 2)
Quarter: 2019Q1

REPORT INFORMATION
  Report Type: Report from Study
  Country: US (occurrence: US)
  Receive Date: 20180723
  Receipt Date: 20190130
  Transmission Date: 20190417
  Serious: No
  Sender: FDA-Public Use
  Company Number: US-EXELIXIS-CABO-18013629

PATIENT
  Age: 55 Year
  Sex: Male

DRUGS (1)
  1. CABOMETYX [Suspect]
     Active Substance: CABOZANTINIB S-MALATE
     Indication: RENAL CANCER
     Dosage: 40 MG, QD
     Route: 048
     Dates: start: 20180404

REACTIONS (6)
  - Skin discolouration [Unknown]
  - Feeling hot [Unknown]
  - Faeces discoloured [Unknown]
  - Peripheral coldness [Unknown]
  - Diarrhoea [Unknown]
  - Dry skin [Unknown]

NARRATIVE: CASE EVENT DATE: 201804
